FAERS Safety Report 9590753 (Version 2)
Quarter: 2013Q4

REPORT INFORMATION
  Report Type: Spontaneous
  Country: US (occurrence: US)
  Receive Date: 20131003
  Receipt Date: 20131003
  Transmission Date: 20140711
  Serious: No
  Sender: FDA-Public Use
  Company Number: US-AMGEN-USASP2012075111

PATIENT
  Age: 44 Year
  Sex: Female
  Weight: 132.88 kg

DRUGS (5)
  1. ENBREL [Suspect]
     Indication: PSORIASIS
     Dosage: 50 MG, QWK
     Route: 058
     Dates: start: 20121001
  2. SINGULAIR [Concomitant]
     Dosage: 4 MG, UNK
  3. XANAX XR [Concomitant]
     Dosage: 1 MG, UNK
  4. TOPAMAX SPRINKLE [Concomitant]
     Dosage: 25 MG, UNK
  5. CELEXA                             /00582602/ [Concomitant]
     Dosage: 10 MG, UNK

REACTIONS (6)
  - Nausea [Not Recovered/Not Resolved]
  - Pyrexia [Recovered/Resolved]
  - Chills [Recovered/Resolved]
  - Fatigue [Not Recovered/Not Resolved]
  - Diarrhoea [Recovered/Resolved]
  - Injection site pain [Unknown]
